FAERS Safety Report 5264918-2 (Version None)
Quarter: 2007Q1

REPORT INFORMATION
  Report Type: 
  Country: None (occurrence: None)
  Receive Date: 20061117
  Receipt Date: 20051206
  Transmission Date: 20070707
  Serious: Yes (Disabling)
  Sender: FDA-Public Use
  Company Number: US-JNJFOC-20040904860

PATIENT
  Age: 63 Year
  Sex: Male
  Weight: 68.9467 kg

DRUGS (2)
  1. LEVAQUIN [Suspect]
     Indication: STOMACH DISCOMFORT
     Dosage: 250 MG, 2 IN 1 DAY, ORAL
     Route: 048
     Dates: start: 20040720, end: 20040723
  2. XANAX [Concomitant]

REACTIONS (4)
  - ARTHRALGIA [None]
  - DEPRESSION [None]
  - MYALGIA [None]
  - PAIN IN EXTREMITY [None]
